FAERS Safety Report 5165749-4 (Version None)
Quarter: 2006Q4

REPORT INFORMATION
  Report Type: 
  Country: None (occurrence: None)
  Receive Date: 20061128
  Receipt Date: 20061116
  Transmission Date: 20070319
  Serious: Yes (Hospitalization, Disabling, Other)
  Sender: FDA-Public Use
  Company Number: 2006111323

PATIENT
  Age: 68 Year
  Sex: Male
  Weight: 82 kg

DRUGS (4)
  1. ATORVASTATIN CALCIUM [Suspect]
     Indication: HYPERLIPIDAEMIA
     Dosage: 10 MG, ORAL
     Route: 048
     Dates: start: 19980101, end: 20060925
  2. LEVOTHYROXINE SODIUM [Concomitant]
  3. BISOPROLOL FUMARATE [Concomitant]
  4. SIFROL               (PRAMIPEXOLE DIHYDROCHLORIDE) [Concomitant]

REACTIONS (3)
  - GAIT DISTURBANCE [None]
  - POLYNEUROPATHY [None]
  - SPINAL COLUMN STENOSIS [None]
